FAERS Safety Report 26136832 (Version 1)
Quarter: 2025Q4

REPORT INFORMATION
  Report Type: Spontaneous
  Country: US (occurrence: None)
  Receive Date: 20251209
  Receipt Date: 20251209
  Transmission Date: 20260117
  Serious: No
  Sender: FDA-CTU
  Company Number: None

PATIENT
  Age: 55 Year
  Sex: Male
  Weight: 113 kg

DRUGS (1)
  1. TIRZEPATIDE [Suspect]
     Active Substance: TIRZEPATIDE
     Indication: Weight decreased
     Dosage: 5 MG QWEEK SQ
     Route: 058
     Dates: start: 20250501, end: 20250616

REACTIONS (7)
  - Impaired gastric emptying [None]
  - Condition aggravated [None]
  - Abdominal pain [None]
  - Constipation [None]
  - Diarrhoea [None]
  - Contraindicated product administered [None]
  - Contraindicated product prescribed [None]
